FAERS Safety Report 5669717-5 (Version None)
Quarter: 2008Q1

REPORT INFORMATION
  Report Type: 
  Country: None (occurrence: None)
  Receive Date: 20080317
  Receipt Date: 20080303
  Transmission Date: 20080703
  Serious: Yes (Hospitalization, Other)
  Sender: FDA-Public Use
  Company Number: PHEH2008US01253

PATIENT
  Sex: Female

DRUGS (3)
  1. ZELMAC HTF+TAB [Suspect]
     Indication: IRRITABLE BOWEL SYNDROME
     Dosage: 3 MG, QD
     Route: 048
     Dates: start: 20030801, end: 20050401
  2. ZELMAC HTF+TAB [Suspect]
     Dosage: 3 MG, BID
     Dates: start: 20050402, end: 20051008
  3. ZELMAC HTF+TAB [Suspect]
     Dosage: 6 MG, BID
     Dates: start: 20051009, end: 20060105

REACTIONS (6)
  - CARDIAC DISORDER [None]
  - CARDIAC FAILURE CONGESTIVE [None]
  - CARDIAC PACEMAKER INSERTION [None]
  - HEPATIC STEATOSIS [None]
  - PULMONARY EMBOLISM [None]
  - SLEEP APNOEA SYNDROME [None]
